FAERS Safety Report 7037029-3 (Version None)
Quarter: 2010Q4

REPORT INFORMATION
  Report Type: 
  Country: None (occurrence: None)
  Receive Date: 20101011
  Receipt Date: 20101005
  Transmission Date: 20110411
  Serious: Yes (Death, Life-Threatening, Hospitalization)
  Sender: FDA-Public Use
  Company Number: FR-SANOFI-AVENTIS-2010SA059443

PATIENT
  Age: 45 Year
  Sex: Female

DRUGS (4)
  1. TAXOTERE [Suspect]
     Indication: BREAST CANCER
     Route: 042
     Dates: start: 20080901, end: 20081001
  2. CYCLOPHOSPHAMIDE [Suspect]
     Indication: BREAST CANCER
     Route: 042
     Dates: start: 20080601, end: 20080901
  3. EPIRUBICIN [Suspect]
     Indication: BREAST CANCER
     Route: 042
     Dates: start: 20080601, end: 20080901
  4. FLUOROURACILE [Concomitant]
     Indication: BREAST CANCER
     Route: 042
     Dates: start: 20080601, end: 20080901

REACTIONS (1)
  - ACUTE MYELOID LEUKAEMIA [None]
